FAERS Safety Report 13403504 (Version 1)
Quarter: 2017Q2

REPORT INFORMATION
  Report Type: Spontaneous
  Country: PT (occurrence: PT)
  Receive Date: 20170405
  Receipt Date: 20170405
  Transmission Date: 20170830
  Serious: Yes (Death, Hospitalization, Other)
  Sender: FDA-Public Use
  Company Number: PT-MYLANLABS-2017M1019857

PATIENT

DRUGS (3)
  1. CITICOLINE SODIUM [Suspect]
     Active Substance: CITICOLINE SODIUM
     Indication: PRODUCT USED FOR UNKNOWN INDICATION
  2. LORAZEPAM. [Suspect]
     Active Substance: LORAZEPAM
     Indication: PRODUCT USED FOR UNKNOWN INDICATION
     Dosage: 15 MG, QD
  3. AMITRIPTYLINE [Suspect]
     Active Substance: AMITRIPTYLINE
     Indication: PRODUCT USED FOR UNKNOWN INDICATION

REACTIONS (24)
  - Catatonia [Unknown]
  - Psychomotor retardation [Unknown]
  - Eating disorder [Unknown]
  - Reduced facial expression [Unknown]
  - Abnormal behaviour [Unknown]
  - Balance disorder [Unknown]
  - Memory impairment [Unknown]
  - Bradykinesia [Unknown]
  - Apraxia [Unknown]
  - Blunted affect [Unknown]
  - Anhedonia [Unknown]
  - Encephalopathy [Unknown]
  - Apathy [Unknown]
  - Septic shock [Fatal]
  - Tension headache [Unknown]
  - Loss of personal independence in daily activities [Unknown]
  - Decreased appetite [Unknown]
  - Waxy flexibility [Unknown]
  - Acalculia [Unknown]
  - Asthenia [Unknown]
  - Weight decreased [Unknown]
  - Myoclonus [Unknown]
  - Disorientation [Unknown]
  - Exophthalmos [Unknown]
